FAERS Safety Report 19364343 (Version 1)
Quarter: 2021Q2

REPORT INFORMATION
  Report Type: Spontaneous
  Country: US (occurrence: US)
  Receive Date: 20210603
  Receipt Date: 20210603
  Transmission Date: 20210717
  Serious: No
  Sender: FDA-Public Use
  Company Number: US-CELGENEUS-USA-20210506873

PATIENT
  Sex: Male
  Weight: 76.27 kg

DRUGS (2)
  1. THALOMID [Suspect]
     Active Substance: THALIDOMIDE
     Indication: CHRONIC MYELOID LEUKAEMIA
     Dosage: 100 MILLIGRAM, STARTING FIRST DAY OF CHEMO CYCLE EVERY 6 WEEKS
     Route: 048
     Dates: start: 20210414, end: 202105
  2. THALOMID [Suspect]
     Active Substance: THALIDOMIDE
     Indication: PLASMA CELL MYELOMA RECURRENT

REACTIONS (1)
  - Therapeutic response decreased [Unknown]
